FAERS Safety Report 5365964-0 (Version None)
Quarter: 2007Q2

REPORT INFORMATION
  Report Type: 
  Country: None (occurrence: None)
  Receive Date: 20070611
  Receipt Date: 20070306
  Transmission Date: 20071010
  Serious: Yes (Other)
  Sender: FDA-Public Use
  Company Number: USA-2007-0026709

PATIENT
  Sex: Female

DRUGS (2)
  1. OXYCODONE HCL CR TABLETS (SIMILAR TO NDA 20-553) (OXYCODONE HYDROCHLOR [Suspect]
     Indication: FIBROMYALGIA
     Dosage: 40 MB, BID
  2. OXYCODONE HCL [Suspect]
     Indication: FIBROMYALGIA
     Dosage: 5 MG, QID

REACTIONS (1)
  - DRUG DEPENDENCE [None]
